FAERS Safety Report 8630549 (Version 2)
Quarter: 2012Q4

REPORT INFORMATION
  Report Type: 
  Country: FR (occurrence: FR)
  Receive Date: 20120622
  Receipt Date: 20121001
  Transmission Date: 20130627
  Serious: Yes (Hospitalization)
  Sender: FDA-Public Use
  Company Number: FR-PFIZER INC-2012144284

PATIENT
  Age: 54 Year
  Sex: Female

DRUGS (3)
  1. DALACINE [Suspect]
     Indication: PROPIONIBACTERIUM INFECTION
     Dosage: 750 mg, 1x/day
     Route: 048
     Dates: start: 20120423, end: 20120507
  2. INNOHEP [Concomitant]
     Dosage: UNK
     Route: 058
     Dates: start: 20120402, end: 201205
  3. TARDYFERON-FOL [Concomitant]
     Dosage: UNK
     Dates: start: 20120402, end: 201205

REACTIONS (1)
  - Drug reaction with eosinophilia and systemic symptoms [Recovered/Resolved]
